FAERS Safety Report 13261160 (Version 3)
Quarter: 2018Q1

REPORT INFORMATION
  Report Type: Report from Study
  Country: US (occurrence: US)
  Receive Date: 20170222
  Receipt Date: 20180311
  Transmission Date: 20180508
  Serious: Yes (Hospitalization, Other)
  Sender: FDA-Public Use
  Company Number: PHEH2017US004817

PATIENT
  Sex: Male

DRUGS (1)
  1. NEORAL [Suspect]
     Active Substance: CYCLOSPORINE
     Indication: TRANSPLANT
     Route: 065

REACTIONS (16)
  - Anaemia [Unknown]
  - Deafness [Unknown]
  - Cytomegalovirus gastrointestinal infection [Unknown]
  - Gout [Unknown]
  - Night blindness [Unknown]
  - Road traffic accident [Unknown]
  - Chronic kidney disease [Unknown]
  - Bipolar disorder [Unknown]
  - Sciatica [Unknown]
  - Gait disturbance [Unknown]
  - Headache [Unknown]
  - Hypertension [Unknown]
  - Pancytopenia [Recovering/Resolving]
  - Diabetes mellitus [Unknown]
  - Spinal column stenosis [Unknown]
  - Blood cholesterol increased [Unknown]

NARRATIVE: CASE EVENT DATE: 2011
